FAERS Safety Report 16589806 (Version 1)
Quarter: 2019Q3

REPORT INFORMATION
  Report Type: Spontaneous
  Country: US (occurrence: US)
  Receive Date: 20190717
  Receipt Date: 20190717
  Transmission Date: 20191004
  Serious: Yes (Hospitalization)
  Sender: FDA-Public Use
  Company Number: None

PATIENT
  Sex: Male

DRUGS (4)
  1. TEMOZOLOMIDE. [Suspect]
     Active Substance: TEMOZOLOMIDE
     Indication: MALIGNANT MELANOMA
     Route: 048
     Dates: start: 20190521
  2. LEVOTHYROXIN, PROCHLORPER, ALPRAZOLAM [Concomitant]
  3. TEMOZOLOMIDE. [Suspect]
     Active Substance: TEMOZOLOMIDE
     Indication: MALIGNANT MELANOMA
     Route: 048
     Dates: start: 20190521
  4. IRON, HYDROCORT, PREDNISONE [Concomitant]

REACTIONS (1)
  - Brain operation [None]
